FAERS Safety Report 7047421-9 (Version None)
Quarter: 2010Q4

REPORT INFORMATION
  Report Type: 
  Country: None (occurrence: None)
  Receive Date: 20101015
  Receipt Date: 20101004
  Transmission Date: 20110411
  Serious: Yes (Other)
  Sender: FDA-Public Use
  Company Number: ES-ROCHE-732179

PATIENT

DRUGS (1)
  1. PYRIMETHAMINE/SULFADOXINE [Suspect]
     Indication: MALARIA PROPHYLAXIS
     Dosage: DOSE: 3 TABLETS OF SP (1500 MG SULPHADOXINE/ 75 MG PYRIMETAMINE)
     Route: 064

REACTIONS (1)
  - DEATH [None]
